FAERS Safety Report 23932149 (Version 1)
Quarter: 2024Q2

REPORT INFORMATION
  Report Type: Spontaneous
  Country: CZ (occurrence: CZ)
  Receive Date: 20240603
  Receipt Date: 20240603
  Transmission Date: 20240716
  Serious: Yes (Other)
  Sender: FDA-Public Use
  Company Number: None

PATIENT
  Age: 70 Year
  Sex: Male
  Weight: 79 kg

DRUGS (1)
  1. CAPECITABINE [Suspect]
     Active Substance: CAPECITABINE
     Indication: Rectal cancer
     Dosage: 2-WEEKS CYCLES 3-0-2
     Dates: start: 20220112, end: 20221109

REACTIONS (1)
  - Anaemia macrocytic [Recovering/Resolving]

NARRATIVE: CASE EVENT DATE: 20220427
